FAERS Safety Report 7706833-8 (Version None)
Quarter: 2011Q3

REPORT INFORMATION
  Report Type: 
  Country: None (occurrence: None)
  Receive Date: 20110824
  Receipt Date: 20110810
  Transmission Date: 20111222
  Serious: Yes (Hospitalization)
  Sender: FDA-Public Use
  Company Number: US-GLAXOSMITHKLINE-A0759672A

PATIENT
  Age: 50 Year
  Sex: Male
  Weight: 98.6 kg

DRUGS (7)
  1. GLUCOPHAGE [Concomitant]
     Dates: start: 19990601
  2. NOVOLOG [Concomitant]
     Dates: start: 20030101
  3. AVANDIA [Suspect]
     Indication: TYPE 2 DIABETES MELLITUS
     Dosage: 4MG TWICE PER DAY
     Route: 048
     Dates: start: 20000101, end: 20070301
  4. LISINOPRIL [Concomitant]
  5. VYTORIN [Concomitant]
  6. METFORMIN HYDROCHLORIDE [Concomitant]
     Dates: start: 19990601
  7. LANTUS [Concomitant]
     Dates: start: 20030101, end: 20080501

REACTIONS (1)
  - MYOCARDIAL INFARCTION [None]
